FAERS Safety Report 14692124 (Version 2)
Quarter: 2018Q2

REPORT INFORMATION
  Report Type: Report from Study
  Country: ZA (occurrence: ZA)
  Receive Date: 20180329
  Receipt Date: 20180507
  Transmission Date: 20180711
  Serious: Yes (Hospitalization)
  Sender: FDA-Public Use
  Company Number: ZA-BRISTOL-MYERS SQUIBB COMPANY-BMS-2017-017983

PATIENT
  Age: 51 Year
  Sex: Female

DRUGS (1)
  1. ABATACEPT [Suspect]
     Active Substance: ABATACEPT
     Indication: RHEUMATOID ARTHRITIS
     Dosage: 1000 MG, QMO
     Route: 042
     Dates: start: 20140314

REACTIONS (3)
  - Drug ineffective [Unknown]
  - Tonsillitis [Recovering/Resolving]
  - Sinonasal obstruction [Recovered/Resolved]

NARRATIVE: CASE EVENT DATE: 201802
